FAERS Safety Report 12629975 (Version 2)
Quarter: 2016Q3

REPORT INFORMATION
  Report Type: Report from Study
  Country: PL (occurrence: PL)
  Receive Date: 20160808
  Receipt Date: 20160830
  Transmission Date: 20161109
  Serious: Yes (Hospitalization, Other)
  Sender: FDA-Public Use
  Company Number: PL-TEVA-681331ISR

PATIENT
  Age: 6 Year
  Sex: Female
  Weight: 20 kg

DRUGS (3)
  1. IFOSFAMIDE. [Suspect]
     Active Substance: IFOSFAMIDE
     Indication: EWING^S SARCOMA
     Dosage: 2.48 GRAM DAILY; DATE OF LAST DOSE PRIOR TO SAE: 25-JUN-2016
     Route: 042
     Dates: start: 20160623
  2. TBO-FILGRASTIM [Suspect]
     Active Substance: TBO-FILGRASTIM
     Indication: NEUTROPENIA
     Dosage: DATE OF LAST DOSE PRIOR TO SAE: 14-MAY-2016
     Route: 058
     Dates: start: 20160505
  3. ADRIAMYCIN [Suspect]
     Active Substance: DOXORUBICIN HYDROCHLORIDE
     Indication: EWING^S SARCOMA
     Dosage: 16.5 MILLIGRAM DAILY; DATE OF LAST DOSE PRIOR TO SAE: 25-JUN-2016
     Route: 042
     Dates: start: 20160623

REACTIONS (3)
  - Bone marrow failure [Recovered/Resolved]
  - Febrile neutropenia [Recovered/Resolved]
  - Haematemesis [Recovered/Resolved]

NARRATIVE: CASE EVENT DATE: 20160630
